FAERS Safety Report 15473942 (Version 2)
Quarter: 2018Q4

REPORT INFORMATION
  Report Type: Spontaneous
  Country: US (occurrence: US)
  Receive Date: 20181008
  Receipt Date: 20181011
  Transmission Date: 20190205
  Serious: Yes (Other)
  Sender: FDA-Public Use
  Company Number: US-SA-2017SA261147

PATIENT
  Age: 51 Year
  Sex: Female
  Weight: 52 kg

DRUGS (43)
  1. TAXOTERE [Suspect]
     Active Substance: DOCETAXEL
     Dosage: 113 UNK, Q3W
     Route: 042
     Dates: start: 20050616, end: 20050616
  2. TAXOTERE [Suspect]
     Active Substance: DOCETAXEL
     Dosage: 113 MG, Q3W
     Route: 042
     Dates: start: 20050905, end: 20050905
  3. NEOSAR [Concomitant]
     Active Substance: CYCLOPHOSPHAMIDE
     Dosage: 750 UNK, QCY
     Dates: start: 20050705, end: 20050705
  4. NEOSAR [Concomitant]
     Active Substance: CYCLOPHOSPHAMIDE
     Dosage: 750 UNK, QCY
     Route: 065
     Dates: start: 20050725, end: 20050725
  5. NEOSAR [Concomitant]
     Active Substance: CYCLOPHOSPHAMIDE
     Dosage: 750 UNK, QCY
     Route: 065
     Dates: start: 20050815, end: 20050815
  6. DEXAMETHASONE. [Concomitant]
     Active Substance: DEXAMETHASONE
     Dosage: 10 UNK, UNK
     Route: 065
     Dates: start: 20050906, end: 20050906
  7. DOLASETRON MESYLATE [Concomitant]
     Active Substance: DOLASETRON MESYLATE
     Dosage: 100 UNK, UNK
     Route: 065
     Dates: start: 20050616, end: 20050616
  8. DOLASETRON MESYLATE [Concomitant]
     Active Substance: DOLASETRON MESYLATE
     Dosage: 100 UNK, UNK
     Route: 065
     Dates: start: 20050705, end: 20050705
  9. EPOETIN ALFA [Concomitant]
     Active Substance: ERYTHROPOIETIN
     Dosage: 40000 UNK, UNK
     Route: 065
     Dates: start: 20050906, end: 20050906
  10. PALONOSETRON HCL [Concomitant]
     Active Substance: PALONOSETRON HYDROCHLORIDE
     Dosage: 0.25 UNK, QCY
     Route: 065
     Dates: start: 20050523, end: 20050523
  11. NEOSAR [Concomitant]
     Active Substance: CYCLOPHOSPHAMIDE
     Dosage: 750 UNK, QCY
     Route: 065
     Dates: start: 20050613, end: 20050613
  12. EPOETIN ALFA [Concomitant]
     Active Substance: ERYTHROPOIETIN
     Dosage: 40000 UNK, UNK
     Route: 065
     Dates: start: 20050725, end: 20050725
  13. PALONOSETRON HCL [Concomitant]
     Active Substance: PALONOSETRON HYDROCHLORIDE
     Dosage: 0.25 UNK, QCY
     Route: 065
     Dates: start: 20050725, end: 20050725
  14. PEGFILGRASTIM [Concomitant]
     Active Substance: PEGFILGRASTIM
     Dosage: 6 UNK, UNK
     Dates: start: 20050527, end: 20050527
  15. PEGFILGRASTIM [Concomitant]
     Active Substance: PEGFILGRASTIM
     Dosage: 6 UNK, UNK
     Route: 065
     Dates: start: 20050617, end: 20050617
  16. TAXOTERE [Suspect]
     Active Substance: DOCETAXEL
     Dosage: 113 MG, Q3W
     Route: 042
     Dates: start: 20050728, end: 20050728
  17. NEOSAR [Concomitant]
     Active Substance: CYCLOPHOSPHAMIDE
     Dosage: 750 UNK, QCY
     Route: 065
     Dates: start: 20050906, end: 20050906
  18. DEXAMETHASONE. [Concomitant]
     Active Substance: DEXAMETHASONE
     Dosage: 10 UNK, UNK
     Route: 065
     Dates: start: 20050526, end: 20050526
  19. EPOETIN ALFA [Concomitant]
     Active Substance: ERYTHROPOIETIN
     Dosage: 40000 UNK, UNK
     Route: 065
     Dates: start: 20050705, end: 20050705
  20. TAXOTERE [Suspect]
     Active Substance: DOCETAXEL
     Dosage: 113 MG, Q3W
     Route: 042
     Dates: start: 20050708, end: 20050708
  21. TAXOTERE [Suspect]
     Active Substance: DOCETAXEL
     Dosage: 113 MG, Q3W
     Route: 042
     Dates: start: 20050818, end: 20050818
  22. ADRIAMYCIN [Concomitant]
     Active Substance: DOXORUBICIN HYDROCHLORIDE
     Dosage: 75 UNK, QCY
     Route: 065
     Dates: start: 20050613, end: 20050613
  23. ADRIAMYCIN [Concomitant]
     Active Substance: DOXORUBICIN HYDROCHLORIDE
     Dosage: 75 UNK, QCY
     Route: 065
     Dates: start: 20050725, end: 20050725
  24. DEXAMETHASONE. [Concomitant]
     Active Substance: DEXAMETHASONE
     Dosage: 10 UNK, UNK
     Route: 065
     Dates: start: 20050523, end: 20050523
  25. DEXAMETHASONE. [Concomitant]
     Active Substance: DEXAMETHASONE
     Dosage: 10 UNK, UNK
     Route: 065
     Dates: start: 20050725, end: 20050725
  26. DOLASETRON MESYLATE [Concomitant]
     Active Substance: DOLASETRON MESYLATE
     Dosage: 100 UNK, UNK
     Route: 065
     Dates: start: 20050526, end: 20050526
  27. EPOETIN ALFA [Concomitant]
     Active Substance: ERYTHROPOIETIN
     Dosage: 40000 UNK, UNK
     Route: 065
     Dates: start: 20050815, end: 20050815
  28. LORAZEPAM. [Concomitant]
     Active Substance: LORAZEPAM
     Dosage: 1 UNK, UNK
     Route: 065
     Dates: start: 20050526, end: 20050526
  29. GRANISETRON HCL [Concomitant]
     Dosage: 1 UNK, QCY
     Dates: start: 20050906, end: 20050906
  30. NEOSAR [Concomitant]
     Active Substance: CYCLOPHOSPHAMIDE
     Dosage: 750 UNK, QCY
     Dates: start: 20050523, end: 20050523
  31. ADRIAMYCIN [Concomitant]
     Active Substance: DOXORUBICIN HYDROCHLORIDE
     Dosage: 75 UNK, QCY
     Route: 065
     Dates: start: 20050906, end: 20050906
  32. DEXAMETHASONE. [Concomitant]
     Active Substance: DEXAMETHASONE
     Dosage: 10 UNK, UNK
     Route: 065
     Dates: start: 20050616, end: 20050616
  33. DEXAMETHASONE. [Concomitant]
     Active Substance: DEXAMETHASONE
     Dosage: 10 UNK, UNK
     Route: 065
     Dates: start: 20050705, end: 20050705
  34. ADRIAMYCIN [Concomitant]
     Active Substance: DOXORUBICIN HYDROCHLORIDE
     Dosage: 75 UNK, QCY
     Route: 065
     Dates: start: 20050523, end: 20050523
  35. ADRIAMYCIN [Concomitant]
     Active Substance: DOXORUBICIN HYDROCHLORIDE
     Dosage: 75 UNK, QCY
     Route: 065
     Dates: start: 20050705, end: 20050705
  36. ADRIAMYCIN [Concomitant]
     Active Substance: DOXORUBICIN HYDROCHLORIDE
     Dosage: 75 UNK, QCY
     Route: 065
     Dates: start: 20050815, end: 20050815
  37. PALONOSETRON HCL [Concomitant]
     Active Substance: PALONOSETRON HYDROCHLORIDE
     Dosage: 0.25 UNK, QCY
     Route: 065
     Dates: start: 20050613, end: 20050613
  38. GRANISETRON HCL [Concomitant]
     Dosage: 1 UNK, QCY
     Route: 065
     Dates: start: 20050815, end: 20050815
  39. DEXAMETHASONE. [Concomitant]
     Active Substance: DEXAMETHASONE
     Dosage: 10 UNK, UNK
     Route: 065
     Dates: start: 20050708, end: 20050708
  40. DEXAMETHASONE. [Concomitant]
     Active Substance: DEXAMETHASONE
     Dosage: 10 UNK, UNK
     Route: 065
     Dates: start: 20050815, end: 20050815
  41. TAXOTERE [Suspect]
     Active Substance: DOCETAXEL
     Indication: BREAST CANCER FEMALE
     Dosage: 113 MG, Q3W
     Route: 042
     Dates: start: 20050526, end: 20050526
  42. DEXAMETHASONE. [Concomitant]
     Active Substance: DEXAMETHASONE
     Dosage: 10 UNK, UNK
     Route: 065
     Dates: start: 20050613, end: 20050613
  43. PEGFILGRASTIM [Concomitant]
     Active Substance: PEGFILGRASTIM
     Dosage: UNK

REACTIONS (2)
  - Alopecia [Recovering/Resolving]
  - Psychological trauma [Unknown]

NARRATIVE: CASE EVENT DATE: 20060305
